FAERS Safety Report 21364687 (Version 9)
Quarter: 2022Q4

REPORT INFORMATION
  Report Type: Report from Study
  Country: FR (occurrence: None)
  Receive Date: 20220922
  Receipt Date: 20221104
  Transmission Date: 20230112
  Serious: Yes (Hospitalization)
  Sender: FDA-Public Use
  Company Number: FR-Eisai Medical Research-EC-2022-124043

PATIENT
  Age: 60 Year
  Sex: Male
  Weight: 59 kg

DRUGS (11)
  1. LENVATINIB [Suspect]
     Active Substance: LENVATINIB
     Indication: Hormone-refractory prostate cancer
     Route: 048
     Dates: start: 20220421, end: 20220914
  2. LENVATINIB [Suspect]
     Active Substance: LENVATINIB
     Indication: Prostate cancer metastatic
     Route: 048
     Dates: start: 20221006
  3. PEMBROLIZUMAB [Suspect]
     Active Substance: PEMBROLIZUMAB
     Indication: Hormone-refractory prostate cancer
     Route: 041
     Dates: start: 20220421, end: 20220825
  4. PEMBROLIZUMAB [Suspect]
     Active Substance: PEMBROLIZUMAB
     Indication: Prostate cancer metastatic
     Route: 041
     Dates: start: 20221006
  5. FIRMAGON [Concomitant]
     Active Substance: DEGARELIX ACETATE
     Dates: start: 20171120
  6. ALBUTEROL SULFATE [Concomitant]
     Active Substance: ALBUTEROL SULFATE
     Dates: start: 20000101
  7. FLUTICASONE FUROATE\UMECLIDINIUM BROMIDE\VILANTEROL TRIFENATATE [Concomitant]
     Active Substance: FLUTICASONE FUROATE\UMECLIDINIUM BROMIDE\VILANTEROL TRIFENATATE
     Dates: start: 20000101
  8. AMLODIPINE [Concomitant]
     Active Substance: AMLODIPINE BESYLATE
     Dates: start: 20220524
  9. METOCLOPRAMIDE [Concomitant]
     Active Substance: METOCLOPRAMIDE
     Dates: start: 20220623
  10. LEVOTHYROXINE [Concomitant]
     Active Substance: LEVOTHYROXINE
     Dates: start: 20220805, end: 20220914
  11. IRBESARTAN [Concomitant]
     Active Substance: IRBESARTAN
     Dates: start: 20220805

REACTIONS (1)
  - Hypokalaemia [Recovered/Resolved]

NARRATIVE: CASE EVENT DATE: 20220915
